FAERS Safety Report 4926061-9 (Version None)
Quarter: 2006Q1

REPORT INFORMATION
  Report Type: 
  Country: None (occurrence: None)
  Receive Date: 20060228
  Receipt Date: 20050808
  Transmission Date: 20060701
  Serious: No
  Sender: FDA-Public Use
  Company Number: US-GLAXOSMITHKLINE-A0569217A

PATIENT
  Age: 58 Year
  Sex: Female

DRUGS (7)
  1. LAMICTAL [Suspect]
     Indication: BIPOLAR DISORDER
     Dosage: 300MG PER DAY
     Route: 048
     Dates: start: 20050301
  2. CELEXA [Concomitant]
  3. LEVOXYL [Concomitant]
  4. MOTRIN [Concomitant]
  5. AMBIEN [Concomitant]
  6. KLONOPIN [Concomitant]
  7. RISPERDAL [Concomitant]

REACTIONS (2)
  - DRUG INEFFECTIVE [None]
  - NIGHTMARE [None]
